FAERS Safety Report 16519953 (Version 5)
Quarter: 2019Q3

REPORT INFORMATION
  Report Type: Report from Study
  Country: US (occurrence: US)
  Receive Date: 20190702
  Receipt Date: 20190913
  Transmission Date: 20191004
  Serious: Yes (Death, Life-Threatening, Hospitalization)
  Sender: FDA-Public Use
  Company Number: US-EXELIXIS-XL18419021801

PATIENT
  Age: 54 Year
  Sex: Female
  Weight: 70 kg

DRUGS (12)
  1. ATEZOLIZUMAB. [Suspect]
     Active Substance: ATEZOLIZUMAB
     Indication: ENDOMETRIAL CANCER
     Dosage: 1200 MG, Q3WEEKS
     Route: 042
     Dates: start: 20190607
  2. ONDANSETRON HCL [Concomitant]
     Active Substance: ONDANSETRON HYDROCHLORIDE
  3. SYNTHROID [Concomitant]
     Active Substance: LEVOTHYROXINE SODIUM
  4. XL184 [Suspect]
     Active Substance: CABOZANTINIB
     Indication: ENDOMETRIAL CANCER
     Dosage: 40 MG, QD
     Route: 048
     Dates: start: 20190607
  5. CLONAZEPAM. [Concomitant]
     Active Substance: CLONAZEPAM
  6. ZOFRAN [Concomitant]
     Active Substance: ONDANSETRON HYDROCHLORIDE
  7. OXYCONTIN [Concomitant]
     Active Substance: OXYCODONE HYDROCHLORIDE
  8. OXYCODONE HYDROCHLORIDE. [Concomitant]
     Active Substance: OXYCODONE HYDROCHLORIDE
  9. AMLODIPINE BESYLATE. [Concomitant]
     Active Substance: AMLODIPINE BESYLATE
  10. METOPROLOL TARTRATE. [Concomitant]
     Active Substance: METOPROLOL TARTRATE
  11. HEPARIN LOCK FLUSH [Concomitant]
     Active Substance: HEPARIN SODIUM
  12. SODIUM CHLORIDE. [Concomitant]
     Active Substance: SODIUM CHLORIDE

REACTIONS (5)
  - Sepsis [Fatal]
  - Peritonitis [Not Recovered/Not Resolved]
  - Nausea [Not Recovered/Not Resolved]
  - Intestinal perforation [Not Recovered/Not Resolved]
  - Vomiting [Not Recovered/Not Resolved]

NARRATIVE: CASE EVENT DATE: 20190607
